FAERS Safety Report 12986577 (Version 1)
Quarter: 2016Q4

REPORT INFORMATION
  Report Type: Spontaneous
  Country: US (occurrence: US)
  Receive Date: 20161129
  Receipt Date: 20161129
  Transmission Date: 20170207
  Serious: No
  Sender: FDA-Public Use
  Company Number: None

PATIENT
  Age: 64 Year
  Sex: Male

DRUGS (4)
  1. NORVIR [Suspect]
     Active Substance: RITONAVIR
     Indication: HIV INFECTION
  2. NORVIR [Suspect]
     Active Substance: RITONAVIR
     Indication: HYPERLIPIDAEMIA
  3. NORVIR [Suspect]
     Active Substance: RITONAVIR
     Indication: ESSENTIAL HYPERTENSION
  4. NORVIR [Suspect]
     Active Substance: RITONAVIR
     Indication: THYROID DISORDER

REACTIONS (1)
  - Chest pain [None]

NARRATIVE: CASE EVENT DATE: 20161129
